FAERS Safety Report 13219881 (Version 1)
Quarter: 2017Q1

REPORT INFORMATION
  Report Type: Other
  Country: US (occurrence: US)
  Receive Date: 20170210
  Receipt Date: 20170210
  Transmission Date: 20170428
  Serious: Yes (Other)
  Sender: FDA-Public Use
  Company Number: US-ACORDA-ACO_127296_2016

PATIENT
  Sex: Male
  Weight: 77.98 kg

DRUGS (2)
  1. AUBAGIO [Concomitant]
     Active Substance: TERIFLUNOMIDE
     Indication: PRODUCT USED FOR UNKNOWN INDICATION
  2. AMPYRA [Suspect]
     Active Substance: DALFAMPRIDINE
     Indication: MULTIPLE SCLEROSIS
     Dosage: 10 MG, BID
     Route: 048

REACTIONS (6)
  - Vomiting [Unknown]
  - Weight decreased [Unknown]
  - Cholecystectomy [Unknown]
  - Hypothyroidism [Unknown]
  - Nausea [Unknown]
  - Large intestinal obstruction [Unknown]

NARRATIVE: CASE EVENT DATE: 2014
